FAERS Safety Report 5309542-8 (Version None)
Quarter: 2007Q2

REPORT INFORMATION
  Report Type: 
  Country: None (occurrence: None)
  Receive Date: 20070427
  Receipt Date: 20061003
  Transmission Date: 20071010
  Serious: No
  Sender: FDA-Public Use
  Company Number: US-GLAXOSMITHKLINE-A0622209A

PATIENT
  Age: 54 Year
  Sex: Female

DRUGS (4)
  1. DEXTROAMPETAMINE SULFATE TAB [Suspect]
     Indication: HYPOTENSION
     Dosage: 30MG THREE TIMES PER DAY
     Route: 048
  2. AMBIEN [Concomitant]
  3. PEPCID [Concomitant]
  4. SECTRAL [Concomitant]

REACTIONS (1)
  - DRUG INEFFECTIVE [None]
